FAERS Safety Report 19235915 (Version 1)
Quarter: 2021Q2

REPORT INFORMATION
  Report Type: Spontaneous
  Country: RU (occurrence: RU)
  Receive Date: 20210510
  Receipt Date: 20210510
  Transmission Date: 20210717
  Serious: Yes (Other)
  Sender: FDA-Public Use
  Company Number: RU-009507513-2104RUS006583

PATIENT
  Age: 13 Year
  Sex: Male
  Weight: 49.5 kg

DRUGS (50)
  1. TEMODAL [Suspect]
     Active Substance: TEMOZOLOMIDE
     Dosage: 150 MG/M2 DAYS 105 SD = 200 MG DD = 1000 MG
     Dates: start: 20190117, end: 20190121
  2. TEMODAL [Suspect]
     Active Substance: TEMOZOLOMIDE
     Dosage: 100 MG/M2 DAY 8 SD = 148 MG DD = 148 MG
     Dates: start: 20190902
  3. VINCRISTINE [Suspect]
     Active Substance: VINCRISTINE
     Dosage: 2 MG/M2 DAY 1 SD = DD = 2 MG
     Dates: start: 20180717
  4. VINCRISTINE [Suspect]
     Active Substance: VINCRISTINE
     Dosage: 2 MG DAY 1 SD=DD=2 MG
     Dates: start: 20180831
  5. VINCRISTINE [Suspect]
     Active Substance: VINCRISTINE
     Dosage: 2 MG DAY 1 SD=DD=2 MG
     Dates: start: 20181013
  6. ETOPOSIDE. [Suspect]
     Active Substance: ETOPOSIDE
     Indication: EWING^S SARCOMA
     Dosage: 100 MG/M2 DAYS 1?5 SD = 125 MG DD = 625 MG
     Dates: start: 20180404, end: 20180408
  7. CYCLOPHOSPHAMIDE. [Suspect]
     Active Substance: CYCLOPHOSPHAMIDE
     Indication: EWING^S SARCOMA
     Dosage: 1.2 MG/M2 DAY 1 SD = DD = 1.56 MG
     Dates: start: 20180308
  8. CYCLOPHOSPHAMIDE. [Suspect]
     Active Substance: CYCLOPHOSPHAMIDE
     Dosage: 1200 MG/M2 DAY 1 SD = DD = 1524 MG
     Dates: start: 20180831
  9. CYCLOPHOSPHAMIDE. [Suspect]
     Active Substance: CYCLOPHOSPHAMIDE
     Dosage: 1200 MG/M2 DAY 1 SD = DD = 1680 MG
     Dates: start: 20190304
  10. IRINOTECAN [Suspect]
     Active Substance: IRINOTECAN
     Indication: EWING^S SARCOMA
     Dosage: 50 MG/M2 DAYS 1?5 SD = 64.5 MG DD = 322.5 MG
     Dates: start: 20180717, end: 20180721
  11. IRINOTECAN [Suspect]
     Active Substance: IRINOTECAN
     Dosage: 50 MG/M2 DAYS 1?5 SD = 64.5 MG DD = 322.5 MG
     Dates: start: 20181013, end: 20181017
  12. TEMODAL [Suspect]
     Active Substance: TEMOZOLOMIDE
     Indication: NEOPLASM MALIGNANT
     Dosage: 150 MG/M2 DAYS 1?5 SD = 193.5 MG DD = 967.5 MG
     Dates: start: 20180609, end: 20180613
  13. TEMODAL [Suspect]
     Active Substance: TEMOZOLOMIDE
     Dosage: 150 MG/M2 DAYS 105 SD = 193.5 MG DD = 967.5 MG
     Dates: start: 20181107, end: 20181111
  14. VINCRISTINE [Suspect]
     Active Substance: VINCRISTINE
     Dosage: 2 MG DAY 1 SD=DD=2 MG
     Dates: start: 20181107
  15. IFOSFAMIDE. [Suspect]
     Active Substance: IFOSFAMIDE
     Dosage: 3000 MG/M2 DAYS 1?3 SD = 3900 MG DD = 11700 MG
     Dates: start: 20181225, end: 20181227
  16. ETOPOSIDE. [Suspect]
     Active Substance: ETOPOSIDE
     Dosage: 150 MG/M2 DAYS 1?3 SD = 195 MG DD = 585 MG
     Dates: start: 20180921, end: 20180923
  17. ETOPOSIDE. [Suspect]
     Active Substance: ETOPOSIDE
     Dosage: 150 MG/M2 DAYS 1?3 SD = 195 MG DD = 585 MG
     Dates: start: 20181225, end: 20181227
  18. DOXORUBICIN [Suspect]
     Active Substance: DOXORUBICIN
     Indication: NEOPLASM MALIGNANT
     Dosage: 37.5 MG/M2 DAY 1?2 SD = 46.8 MG DD = 93.6 MG
     Dates: start: 20180124, end: 20180125
  19. IFOSFAMIDE. [Suspect]
     Active Substance: IFOSFAMIDE
     Indication: NEOPLASM MALIGNANT
     Dosage: 1.8 MG/M2 DAYS 1?5 SD = 2.25 MG DD = 11.25 MG
     Dates: start: 20180215, end: 20180219
  20. IFOSFAMIDE. [Suspect]
     Active Substance: IFOSFAMIDE
     Dosage: 1800 MG/M2 DAYS 1?3 SD = 2610 MG DD = 13050MG
     Dates: start: 20190703, end: 20190707
  21. TEMODAL [Suspect]
     Active Substance: TEMOZOLOMIDE
     Dosage: 100 MG/M2 DAY 8 SD = 148 MG DD = 148 MG
     Dates: start: 20190930
  22. CYCLOPHOSPHAMIDE. [Suspect]
     Active Substance: CYCLOPHOSPHAMIDE
     Dosage: 1200 MG/M2 DAY 1 SD = DD = 1524 MG
     Dates: start: 20181204
  23. IRINOTECAN [Suspect]
     Active Substance: IRINOTECAN
     Dosage: 50 MG/M2 DAYS 1?5 SD = 64.5 MG DD = 322.5 MG
     Dates: start: 20181107, end: 20181111
  24. IRINOTECAN [Suspect]
     Active Substance: IRINOTECAN
     Dosage: 50 MG/M2 DAYS 1?5 SD = 70 MG DD = 350 MG
     Dates: start: 20190211, end: 20190215
  25. VINCRISTINE [Suspect]
     Active Substance: VINCRISTINE
     Indication: NEOPLASM MALIGNANT
     Dosage: 2 MG/M2 DAY 1 SD = DD = 2 MG
     Dates: start: 20180124
  26. VINCRISTINE [Suspect]
     Active Substance: VINCRISTINE
     Dosage: 2 MG/M2 DAY 1 SD = DD = 2 MG
     Dates: start: 20180609
  27. ETOPOSIDE. [Suspect]
     Active Substance: ETOPOSIDE
     Dosage: 100 MG/M2 DAYS 1?5 SD = 145 MG DD = 725 MG
     Dates: start: 20190703, end: 20190707
  28. DOXORUBICIN [Suspect]
     Active Substance: DOXORUBICIN
     Dosage: 37.5 MG/M2 DAY 1?2 SD = 47 MG DD = 94 MG
     Dates: start: 20180427, end: 20180428
  29. IFOSFAMIDE. [Suspect]
     Active Substance: IFOSFAMIDE
     Indication: EWING^S SARCOMA
     Dosage: 1.8 MG/M2 DAYS 1?5 SD = 2.25 MG DD = 11.25 MG
     Dates: start: 20180404, end: 20180408
  30. IFOSFAMIDE. [Suspect]
     Active Substance: IFOSFAMIDE
     Dosage: 3000 MG/M2 DAYS 1?3 SD = 3900 MG DD = 11700 MG
     Dates: start: 20180921, end: 20180923
  31. VINCRISTINE [Suspect]
     Active Substance: VINCRISTINE
     Dosage: 2 MG DAY 1 SD=DD=2 MG
     Dates: start: 20190211
  32. VINCRISTINE [Suspect]
     Active Substance: VINCRISTINE
     Dosage: 2 MG DAY 1 SD=DD=2 MG
     Dates: start: 20190610
  33. ETOPOSIDE. [Suspect]
     Active Substance: ETOPOSIDE
     Indication: NEOPLASM MALIGNANT
     Dosage: 100 MG/M2 DAYS 1?5 SD = 125 MG DD = 625 MG
     Dates: start: 20180215, end: 20180219
  34. DOXORUBICIN [Suspect]
     Active Substance: DOXORUBICIN
     Indication: EWING^S SARCOMA
     Dosage: 37.5 MG/M2 DAY 1?2 SD = 48 MG DD = 96 MG
     Dates: start: 20180308, end: 20180309
  35. TEMODAL [Suspect]
     Active Substance: TEMOZOLOMIDE
     Dosage: 150 MG/M2 DAYS 105 SD = 210 MG DD = 1050 MG
     Dates: start: 20190211, end: 20190215
  36. VINCRISTINE [Suspect]
     Active Substance: VINCRISTINE
     Indication: EWING^S SARCOMA
     Dosage: 2 MG/M2 DAY 1 SD = DD = 2 MG
     Dates: start: 20180308
  37. VINCRISTINE [Suspect]
     Active Substance: VINCRISTINE
     Dosage: 2 MG DAY 1 SD=DD=2 MG
     Dates: start: 20190117
  38. VINCRISTINE [Suspect]
     Active Substance: VINCRISTINE
     Dosage: 2 MG DAY 1 SD=DD=2 MG
     Dates: start: 20190403
  39. ETOPOSIDE. [Suspect]
     Active Substance: ETOPOSIDE
     Dosage: 150 MG/M2 DAYS 1?3 SD = 195 MG DD = 585 MG
     Dates: start: 20180807, end: 20180809
  40. CYCLOPHOSPHAMIDE. [Suspect]
     Active Substance: CYCLOPHOSPHAMIDE
     Dosage: 1.2 MG/M2 DAY 1 SD = DD = 1.7 MG
     Dates: start: 20190610
  41. TEMODAL [Suspect]
     Active Substance: TEMOZOLOMIDE
     Indication: EWING^S SARCOMA
     Dosage: 150 MG/M2 DAYS 105 SD = 193.5 MG DD = 967.5 MG
     Dates: start: 20180717, end: 20180721
  42. TEMODAL [Suspect]
     Active Substance: TEMOZOLOMIDE
     Dosage: 150 MG/M2 DAYS 105 SD = 193.5 MG DD = 967.5 MG
     Dates: start: 20181013, end: 20181017
  43. TEMODAL [Suspect]
     Active Substance: TEMOZOLOMIDE
     Dosage: 100 MG/M2 DAY 8 SD = 148 MG DD = 148 MG
     Dates: start: 20190807
  44. VINCRISTINE [Suspect]
     Active Substance: VINCRISTINE
     Dosage: 2 MG/M2 DAY 1 SD = DD = 2 MG
     Dates: start: 20180427
  45. VINCRISTINE [Suspect]
     Active Substance: VINCRISTINE
     Dosage: 2 MG DAY 1 SD=DD=2 MG
     Dates: start: 20181204
  46. CYCLOPHOSPHAMIDE. [Suspect]
     Active Substance: CYCLOPHOSPHAMIDE
     Indication: NEOPLASM MALIGNANT
     Dosage: 1.2 MG/M2 DAY 1 SD = DD = 1.5 MG
     Dates: start: 20180124
  47. CYCLOPHOSPHAMIDE. [Suspect]
     Active Substance: CYCLOPHOSPHAMIDE
     Dosage: 1.2 MG/M2 DAY 1 SD = DD = 1.5 MG
     Dates: start: 20180427
  48. IFOSFAMIDE. [Suspect]
     Active Substance: IFOSFAMIDE
     Dosage: 3000 MG/M2 DAYS 1?3 SD = 3900 MG DD = 11700 MG
     Dates: start: 20180807, end: 20190809
  49. IRINOTECAN [Suspect]
     Active Substance: IRINOTECAN
     Indication: NEOPLASM MALIGNANT
     Dosage: 50 MG/M2 DAYS 1?5 SD = 64.5 MG DD = 322.5 MG
     Dates: start: 20180609, end: 20180613
  50. IRINOTECAN [Suspect]
     Active Substance: IRINOTECAN
     Dosage: 50 MG/M2 DAYS 1?5 SD = 69.5 MG DD = 347.5 MG
     Dates: start: 20190117, end: 20190121

REACTIONS (17)
  - Malignant neoplasm progression [Unknown]
  - General physical health deterioration [Unknown]
  - Hypoxia [Unknown]
  - Thrombocytopenia [Unknown]
  - Karnofsky scale worsened [Unknown]
  - Leukopenia [Unknown]
  - Pneumonia [Unknown]
  - Respiratory failure [Unknown]
  - Dyspnoea [Unknown]
  - Product use in unapproved indication [Unknown]
  - Pneumonia fungal [Unknown]
  - Pericardial effusion [Unknown]
  - Ascites [Unknown]
  - Hyperglycaemia [Unknown]
  - Hydrothorax [Unknown]
  - Respiratory alkalosis [Unknown]
  - Pneumonitis [Unknown]

NARRATIVE: CASE EVENT DATE: 201808
